FAERS Safety Report 4915375-4 (Version None)
Quarter: 2006Q1

REPORT INFORMATION
  Report Type: 
  Country: None (occurrence: None)
  Receive Date: 20060217
  Receipt Date: 20020213
  Transmission Date: 20060701
  Serious: Yes (Life-Threatening, Hospitalization)
  Sender: FDA-Public Use
  Company Number: US-MERCK-0202USA01448

PATIENT
  Age: 45 Year
  Sex: Male
  Weight: 73 kg

DRUGS (2)
  1. VIOXX [Suspect]
     Indication: BACK PAIN
     Route: 048
     Dates: start: 20010531, end: 20010603
  2. VIOXX [Suspect]
     Indication: PAIN IN EXTREMITY
     Route: 048
     Dates: start: 20010531, end: 20010603

REACTIONS (28)
  - ABDOMINAL TENDERNESS [None]
  - ACQUIRED OESOPHAGEAL WEB [None]
  - ASTHENIA [None]
  - CHILLS [None]
  - DEHYDRATION [None]
  - DIARRHOEA [None]
  - DIZZINESS POSTURAL [None]
  - GASTRIC ULCER [None]
  - GASTROINTESTINAL HAEMORRHAGE [None]
  - HIATUS HERNIA [None]
  - LEUKOCYTOSIS [None]
  - MALLORY-WEISS SYNDROME [None]
  - MIGRAINE [None]
  - MUSCLE SPASMS [None]
  - OESOPHAGITIS [None]
  - ORAL INTAKE REDUCED [None]
  - PAIN [None]
  - PLATELET COUNT INCREASED [None]
  - PYREXIA [None]
  - RENAL CELL CARCINOMA STAGE UNSPECIFIED [None]
  - RENAL NEOPLASM [None]
  - SMALL INTESTINAL OBSTRUCTION [None]
  - STOMACH DISCOMFORT [None]
  - STRESS [None]
  - THROMBOSIS [None]
  - VISUAL DISTURBANCE [None]
  - VOMITING [None]
  - WEIGHT DECREASED [None]
